FAERS Safety Report 19942951 (Version 1)
Quarter: 2021Q4

REPORT INFORMATION
  Report Type: Spontaneous
  Country: US (occurrence: US)
  Receive Date: 20211008
  Receipt Date: 20211008
  Transmission Date: 20220303
  Serious: Yes (Death, Hospitalization, Other)
  Sender: FDA-Public Use
  Company Number: None

PATIENT
  Age: 61 Year
  Sex: Male
  Weight: 111.5 kg

DRUGS (2)
  1. TECARTUS [Suspect]
     Active Substance: BREXUCABTAGENE AUTOLEUCEL
     Indication: Mantle cell lymphoma
     Route: 042
     Dates: start: 20210713, end: 20210713
  2. BENDAMUSTINE [Concomitant]
     Active Substance: BENDAMUSTINE
     Dates: start: 20210708, end: 20210709

REACTIONS (29)
  - Pyrexia [None]
  - Cytokine release syndrome [None]
  - Lethargy [None]
  - Disorientation [None]
  - Tachycardia [None]
  - Tachypnoea [None]
  - Blood sodium decreased [None]
  - Mental status changes [None]
  - Hypercapnia [None]
  - Sepsis [None]
  - Unresponsive to stimuli [None]
  - Acute kidney injury [None]
  - Shock [None]
  - Acidosis [None]
  - Hyperglycaemia [None]
  - Agitation [None]
  - Neurotoxicity [None]
  - Hypertension [None]
  - Hyperkalaemia [None]
  - Hyperuricaemia [None]
  - Urinary tract infection [None]
  - Somnolence [None]
  - Drooling [None]
  - Tardive dyskinesia [None]
  - Pleural effusion [None]
  - Atelectasis [None]
  - Pulmonary oedema [None]
  - Discomfort [None]
  - Anxiety [None]

NARRATIVE: CASE EVENT DATE: 20210718
